FAERS Safety Report 21323999 (Version 1)
Quarter: 2022Q3

REPORT INFORMATION
  Report Type: Spontaneous
  Country: US (occurrence: None)
  Receive Date: 20220912
  Receipt Date: 20220912
  Transmission Date: 20221027
  Serious: Yes (Hospitalization)
  Sender: FDA-Public Use
  Company Number: None

PATIENT
  Sex: Female

DRUGS (2)
  1. METHOTREXATE [Suspect]
     Active Substance: METHOTREXATE
     Indication: Intraductal proliferative breast lesion
     Dosage: 50 MG/2ML  INJECTION?INJECT 1.0 ML (CC) UNDER THE SKIN (SUBCUTANOUS INJECTION) WEEKLY? ?
     Route: 058
     Dates: start: 20211009
  2. METHOTREXATE [Suspect]
     Active Substance: METHOTREXATE
     Dosage: FREQUENCY : WEEKLY;?
     Route: 058

REACTIONS (2)
  - Hospitalisation [None]
  - Therapy interrupted [None]
